FAERS Safety Report 4698807-9 (Version None)
Quarter: 2005Q2

REPORT INFORMATION
  Report Type: 
  Country: None (occurrence: None)
  Receive Date: 20050621
  Receipt Date: 20050505
  Transmission Date: 20051028
  Serious: Yes (Hospitalization, Other)
  Sender: FDA-Public Use
  Company Number: PHEH2005US04273

PATIENT
  Age: 78 Year
  Sex: Male
  Weight: 63.5 kg

DRUGS (2)
  1. EXELON [Suspect]
     Indication: DEMENTIA ALZHEIMER'S TYPE
     Dosage: SEE IMAGE
  2. NORVASC [Concomitant]

REACTIONS (5)
  - ATRIOVENTRICULAR BLOCK [None]
  - BRADYCARDIA [None]
  - CARDIAC PACEMAKER INSERTION [None]
  - DIZZINESS [None]
  - SYNCOPE [None]
